FAERS Safety Report 5892283-6 (Version None)
Quarter: 2008Q3

REPORT INFORMATION
  Report Type: 
  Country: None (occurrence: None)
  Receive Date: 20080919
  Receipt Date: 20080911
  Transmission Date: 20090109
  Serious: Yes (Other)
  Sender: FDA-Public Use
  Company Number: 2008US002387

PATIENT
  Age: 27 Year
  Sex: Female

DRUGS (2)
  1. PROGRAF [Suspect]
     Indication: RENAL TRANSPLANT
  2. BYETTA [Suspect]
     Indication: DIABETES MELLITUS
     Dates: start: 20060401

REACTIONS (5)
  - DIABETES MELLITUS [None]
  - DIALYSIS [None]
  - DRUG INTERACTION [None]
  - DRUG LEVEL BELOW THERAPEUTIC [None]
  - KIDNEY TRANSPLANT REJECTION [None]
